FAERS Safety Report 4896995-2 (Version None)
Quarter: 2006Q1

REPORT INFORMATION
  Report Type: 
  Country: None (occurrence: None)
  Receive Date: 20060127
  Receipt Date: 20060119
  Transmission Date: 20060701
  Serious: Yes (Life-Threatening)
  Sender: FDA-Public Use
  Company Number: 200610212GDS

PATIENT
  Age: 18 Year
  Sex: Female
  Weight: 65.318 kg

DRUGS (1)
  1. AVELOX [Suspect]
     Dosage: 400 MG, TOTAL DAILY, ORAL
     Route: 048

REACTIONS (2)
  - DEPRESSION [None]
  - SUICIDAL IDEATION [None]
